FAERS Safety Report 17615174 (Version 4)
Quarter: 2020Q3

REPORT INFORMATION
  Report Type: Spontaneous
  Country: FR (occurrence: FR)
  Receive Date: 20200402
  Receipt Date: 20200803
  Transmission Date: 20201102
  Serious: Yes (Death, Hospitalization, Other)
  Sender: FDA-Public Use
  Company Number: FR-PFIZER INC-2020132603

PATIENT
  Age: 29 Year
  Sex: Female

DRUGS (2)
  1. PARACETAMOL [Concomitant]
     Active Substance: ACETAMINOPHEN
     Indication: INFLUENZA LIKE ILLNESS
     Dosage: 3 G, 1X/DAY
     Route: 048
     Dates: start: 20200302
  2. IBUPROFEN. [Suspect]
     Active Substance: IBUPROFEN
     Indication: INFLUENZA LIKE ILLNESS
     Dosage: 1200 MG, 1X/DAY
     Route: 048
     Dates: start: 20200302, end: 20200305

REACTIONS (11)
  - Superinfection bacterial [Fatal]
  - Pneumonia influenzal [Unknown]
  - Pneumonia [Fatal]
  - Acute respiratory distress syndrome [Unknown]
  - Multiple organ dysfunction syndrome [Unknown]
  - Acute kidney injury [Unknown]
  - Disseminated intravascular coagulation [Unknown]
  - Thrombocytopenia [Unknown]
  - Agranulocytosis [Unknown]
  - Septic shock [Unknown]
  - Bacteraemia [Unknown]

NARRATIVE: CASE EVENT DATE: 20200306
